FAERS Safety Report 15645991 (Version 2)
Quarter: 2019Q1

REPORT INFORMATION
  Report Type: Report from Study
  Country: None (occurrence: US)
  Receive Date: 20181121
  Receipt Date: 20190116
  Transmission Date: 20190417
  Serious: Yes (Other)
  Sender: FDA-Public Use
  Company Number: US-ABBVIE-18K-163-2564866-00

PATIENT
  Age: 66 Year
  Sex: Male
  Weight: 88.98 kg

DRUGS (2)
  1. HUMIRA [Suspect]
     Active Substance: ADALIMUMAB
     Indication: PSORIATIC ARTHROPATHY
     Route: 058
     Dates: start: 20180327
  2. HUMIRA [Suspect]
     Active Substance: ADALIMUMAB
     Indication: PSORIASIS
     Route: 058
     Dates: start: 2006, end: 20180122

REACTIONS (7)
  - Hernia [Recovered/Resolved with Sequelae]
  - Groin pain [Recovered/Resolved]
  - Inguinal hernia [Recovered/Resolved]
  - Diverticulum [Unknown]
  - Procedural pain [Recovered/Resolved]
  - Groin pain [Not Recovered/Not Resolved]
  - Swelling [Recovered/Resolved]

NARRATIVE: CASE EVENT DATE: 2018
